FAERS Safety Report 25590696 (Version 1)
Quarter: 2025Q3

REPORT INFORMATION
  Report Type: Spontaneous
  Country: US (occurrence: US)
  Receive Date: 20250722
  Receipt Date: 20250722
  Transmission Date: 20251021
  Serious: No
  Sender: OCTAPHARMA
  Company Number: US-OCTA-GAM29324

PATIENT
  Age: 75 Year
  Sex: Male

DRUGS (2)
  1. OCTAGAM IMMUNE GLOBULIN (HUMAN) [Suspect]
     Active Substance: HUMAN IMMUNOGLOBULIN G
     Indication: Chronic lymphocytic leukaemia
  2. I-131 [Concomitant]
     Indication: Product used for unknown indication

REACTIONS (2)
  - Anti-thyroid antibody positive [Unknown]
  - Misleading laboratory test result [Unknown]
